FAERS Safety Report 6493104-3 (Version None)
Quarter: 2009Q4

REPORT INFORMATION
  Report Type: 
  Country: None (occurrence: None)
  Receive Date: 20091214
  Receipt Date: 20091203
  Transmission Date: 20100525
  Serious: Yes (Other)
  Sender: FDA-Public Use
  Company Number: US-AMGEN-QUU378320

PATIENT
  Sex: Female

DRUGS (3)
  1. NEULASTA [Suspect]
     Indication: DRUG USE FOR UNKNOWN INDICATION
     Route: 065
     Dates: start: 20091203
  2. ANTI-THYMOCYTE GLOBULIN NOS [Concomitant]
  3. CYCLOSPORINE [Concomitant]

REACTIONS (3)
  - FLUSHING [None]
  - HYPERTENSION [None]
  - PRURITUS GENERALISED [None]
